FAERS Safety Report 7486688-X (Version None)
Quarter: 2011Q2

REPORT INFORMATION
  Report Type: 
  Country: None (occurrence: None)
  Receive Date: 20110517
  Receipt Date: 20110511
  Transmission Date: 20111010
  Serious: Yes (Other)
  Sender: FDA-Public Use
  Company Number: JP-PFIZER INC-2011104448

PATIENT

DRUGS (5)
  1. IRINOTECAN HCL [Suspect]
     Indication: COLON CANCER
  2. FLUOROURACIL [Suspect]
     Indication: COLON CANCER
  3. BEVACIZUMAB [Suspect]
     Indication: COLON CANCER
  4. OXALIPLATIN [Suspect]
     Indication: COLON CANCER
  5. LEUCOVORIN CALCIUM [Suspect]
     Indication: COLON CANCER

REACTIONS (1)
  - GASTRIC ULCER PERFORATION [None]
